FAERS Safety Report 10493198 (Version 1)
Quarter: 2014Q4

REPORT INFORMATION
  Report Type: Spontaneous
  Country: US (occurrence: US)
  Receive Date: 20141002
  Receipt Date: 20141002
  Transmission Date: 20150528
  Serious: No
  Sender: FDA-Public Use
  Company Number: US-GLAXOSMITHKLINE-A1080743A

PATIENT
  Sex: Female

DRUGS (4)
  1. OXYGEN. [Suspect]
     Active Substance: OXYGEN
  2. OXYGEN. [Concomitant]
     Active Substance: OXYGEN
  3. ADVAIR HFA [Suspect]
     Active Substance: FLUTICASONE PROPIONATE\SALMETEROL XINAFOATE
     Indication: ASTHMA
     Route: 055
  4. VENTOLIN [Suspect]
     Active Substance: ALBUTEROL SULFATE
     Indication: ASTHMA
     Route: 055

REACTIONS (2)
  - Dysphonia [Unknown]
  - Aphonia [Unknown]
